FAERS Safety Report 5333371-2 (Version None)
Quarter: 2007Q2

REPORT INFORMATION
  Report Type: 
  Country: None (occurrence: None)
  Receive Date: 20070524
  Receipt Date: 20070523
  Transmission Date: 20071010
  Serious: Yes (Hospitalization)
  Sender: FDA-Public Use
  Company Number: GB-BRISTOL-MYERS SQUIBB COMPANY-13746532

PATIENT
  Age: 34 Year
  Sex: Male
  Weight: 70 kg

DRUGS (2)
  1. EFAVIRENZ [Suspect]
     Indication: HIV INFECTION
     Route: 048
     Dates: start: 20060323
  2. TRUVADA [Suspect]
     Indication: HIV INFECTION
     Dates: start: 20060323

REACTIONS (2)
  - ARTHROPATHY [None]
  - IMMUNE RECONSTITUTION SYNDROME [None]
